FAERS Safety Report 12254631 (Version 1)
Quarter: 2016Q2

REPORT INFORMATION
  Report Type: Spontaneous
  Country: US (occurrence: US)
  Receive Date: 20160411
  Receipt Date: 20160411
  Transmission Date: 20160815
  Serious: No
  Sender: FDA-Public Use
  Company Number: US-SA-2015SA050765

PATIENT
  Age: 72 Year
  Sex: Male

DRUGS (1)
  1. ALLEGRA-D [Suspect]
     Active Substance: FEXOFENADINE\PSEUDOEPHEDRINE
     Indication: MULTIPLE ALLERGIES
     Dosage: TAKEN FROM: USED BEFORE?DOSE AND DAILY DOSE: 60 MG/120 MG
     Route: 048

REACTIONS (3)
  - Extra dose administered [Unknown]
  - Dry mouth [Unknown]
  - Drug ineffective [Unknown]
